FAERS Safety Report 12573801 (Version 1)
Quarter: 2016Q3

REPORT INFORMATION
  Report Type: Spontaneous
  Country: US (occurrence: US)
  Receive Date: 20160720
  Receipt Date: 20160720
  Transmission Date: 20161109
  Serious: No
  Sender: FDA-Public Use
  Company Number: US-PFIZER INC-2016340313

PATIENT
  Sex: Female

DRUGS (3)
  1. LYRICA [Suspect]
     Active Substance: PREGABALIN
     Dosage: 150 MG, UNK
  2. LYRICA [Suspect]
     Active Substance: PREGABALIN
     Indication: FIBROMYALGIA
     Dosage: UNK (SPLITTING 300 MG)
  3. LYRICA [Suspect]
     Active Substance: PREGABALIN
     Indication: RESTLESS LEGS SYNDROME
     Dosage: 450 MG, UNK

REACTIONS (8)
  - Rash [Unknown]
  - Pain in extremity [Unknown]
  - Withdrawal syndrome [Unknown]
  - Intentional product misuse [Unknown]
  - Nausea [Unknown]
  - Headache [Unknown]
  - Eczema [Unknown]
  - Fatigue [Unknown]
